FAERS Safety Report 5243771-7 (Version None)
Quarter: 2007Q1

REPORT INFORMATION
  Report Type: 
  Country: None (occurrence: None)
  Receive Date: 20070222
  Receipt Date: 20070216
  Transmission Date: 20070707
  Serious: Yes (Hospitalization)
  Sender: FDA-Public Use
  Company Number: PHRM2006FR03293

PATIENT
  Age: 34 Year
  Sex: Male
  Weight: 70 kg

DRUGS (3)
  1. LAMISIL [Suspect]
     Indication: NAIL TINEA
     Dosage: 250 MG, QD
     Route: 048
     Dates: start: 20050301, end: 20050401
  2. PURINETHOL [Suspect]
     Indication: COLITIS ULCERATIVE
     Dosage: 150 MG PER DAY
     Route: 048
     Dates: end: 20050401
  3. PURINETHOL [Suspect]
     Dosage: 100 MG PER DAY
     Route: 048
     Dates: start: 20050401

REACTIONS (10)
  - ABDOMINAL PAIN [None]
  - C-REACTIVE PROTEIN INCREASED [None]
  - COLITIS ULCERATIVE [None]
  - DIARRHOEA HAEMORRHAGIC [None]
  - DRUG INTERACTION [None]
  - LEUKOPENIA [None]
  - LYMPHOPENIA [None]
  - MUCOUS STOOLS [None]
  - NEUTROPENIA [None]
  - RECTAL ULCER HAEMORRHAGE [None]
